FAERS Safety Report 16737510 (Version 2)
Quarter: 2019Q3

REPORT INFORMATION
  Report Type: Spontaneous
  Country: US (occurrence: US)
  Receive Date: 20190823
  Receipt Date: 20190827
  Transmission Date: 20191005
  Serious: Yes (Other)
  Sender: FDA-Public Use
  Company Number: US-009507513-1908USA006604

PATIENT
  Age: 31 Year
  Sex: Female
  Weight: 89.71 kg

DRUGS (1)
  1. NEXPLANON [Suspect]
     Active Substance: ETONOGESTREL
     Dosage: 1 ROD ON LEFT UPPER ARM
     Route: 059
     Dates: start: 20190712

REACTIONS (3)
  - Implant site pain [Not Recovered/Not Resolved]
  - Device expulsion [Not Recovered/Not Resolved]
  - Device dislocation [Not Recovered/Not Resolved]

NARRATIVE: CASE EVENT DATE: 20190731
